FAERS Safety Report 22106668 (Version 5)
Quarter: 2024Q1

REPORT INFORMATION
  Report Type: Spontaneous
  Country: US (occurrence: US)
  Receive Date: 20230317
  Receipt Date: 20240311
  Transmission Date: 20240409
  Serious: Yes (Other)
  Sender: FDA-Public Use
  Company Number: US-SA-2023SA078657

PATIENT
  Age: 3 Year
  Sex: Male

DRUGS (4)
  1. ALPROLIX [Suspect]
     Active Substance: EFTRENONACOG ALFA
     Dosage: 2215 UNITS (+/-10%)
     Route: 042
  2. ALPROLIX [Suspect]
     Active Substance: EFTRENONACOG ALFA
     Dosage: 2215 UNITS (+/-10%)
     Route: 042
  3. ALPROLIX [Suspect]
     Active Substance: EFTRENONACOG ALFA
     Dosage: 2285  U, QW
     Route: 042
  4. ALPROLIX [Suspect]
     Active Substance: EFTRENONACOG ALFA
     Dosage: 2285  U, QW
     Route: 042

REACTIONS (6)
  - Seizure [Unknown]
  - Febrile convulsion [Recovering/Resolving]
  - Contusion [Unknown]
  - Swelling face [Unknown]
  - Pyrexia [Unknown]
  - Flushing [Unknown]

NARRATIVE: CASE EVENT DATE: 20230304
